FAERS Safety Report 6093075-8 (Version None)
Quarter: 2009Q1

REPORT INFORMATION
  Report Type: 
  Country: None (occurrence: None)
  Receive Date: 20090224
  Receipt Date: 20090224
  Transmission Date: 20090719
  Serious: No
  Sender: FDA-Public Use
  Company Number: None

PATIENT
  Age: 56 Year
  Sex: Female
  Weight: 53 kg

DRUGS (1)
  1. FORTEO [Suspect]
     Indication: OSTEOPOROSIS
     Dosage: 20UG DAILY SQ
     Route: 058
     Dates: start: 20081104, end: 20081104

REACTIONS (2)
  - ABDOMINAL PAIN LOWER [None]
  - WRONG TECHNIQUE IN DRUG USAGE PROCESS [None]
